FAERS Safety Report 5232826-9 (Version None)
Quarter: 2007Q1

REPORT INFORMATION
  Report Type: 
  Country: None (occurrence: None)
  Receive Date: 20070206
  Receipt Date: 20070206
  Transmission Date: 20070707
  Serious: Yes (Hospitalization, Disabling)
  Sender: FDA-Public Use
  Company Number: None

PATIENT
  Age: 59 Year
  Sex: Female

DRUGS (1)
  1. XIGRIS [Suspect]
     Indication: SEPTIC SHOCK
     Dosage: 24 MCG/KG/HR   CONTINUOUS   IV DRIP
     Route: 041
     Dates: start: 20061109, end: 20061110

REACTIONS (3)
  - ANAEMIA [None]
  - MULTI-ORGAN FAILURE [None]
  - POST PROCEDURAL HAEMORRHAGE [None]
